FAERS Safety Report 8429348-0 (Version None)
Quarter: 2012Q2

REPORT INFORMATION
  Report Type: 
  Country: None (occurrence: None)
  Receive Date: 20120612
  Receipt Date: 20120604
  Transmission Date: 20120825
  Serious: Yes (Hospitalization)
  Sender: FDA-Public Use
  Company Number: DE-UCBSA-053422

PATIENT
  Sex: Female
  Weight: 93 kg

DRUGS (16)
  1. PREDNISOLONE [Concomitant]
     Dates: start: 20110601, end: 20111001
  2. GELOMYRTOL [Concomitant]
     Indication: NASOPHARYNGITIS
     Dates: start: 20120202, end: 20120204
  3. ACETAMINOPHEN [Concomitant]
     Indication: NASOPHARYNGITIS
     Dates: start: 20120202, end: 20120204
  4. METHOTREXATE [Concomitant]
     Indication: RHEUMATOID ARTHRITIS
     Dosage: 15 MG SUFFICIENT QUANTITY (QS)
     Dates: start: 20091001
  5. DICLOFENAC SODIUM [Concomitant]
     Indication: RHEUMATOID ARTHRITIS
     Dates: start: 20101001
  6. DEKRISTOL [Concomitant]
     Indication: OSTEOPOROSIS PROPHYLAXIS
     Dosage: 20000 IU-Q2S
     Dates: start: 20090601
  7. LEDERFOLAT [Concomitant]
     Indication: RHEUMATOID ARTHRITIS
     Dosage: 5 MG SUFFICIENT QUANTITY (QS)
     Dates: start: 20100101
  8. PREDNISOLONE [Concomitant]
     Dates: start: 20110401, end: 20110601
  9. ACETYLCYSTEINE [Concomitant]
     Indication: NASOPHARYNGITIS
     Dates: start: 20120202, end: 20120204
  10. LEVOTHYROXINE SODIUM [Concomitant]
     Indication: THYROIDECTOMY
  11. CIMZIA [Suspect]
     Indication: RHEUMATOID ARTHRITIS
     Dosage: NO OF DOSES RECEIVED-25
     Route: 058
     Dates: start: 20101111
  12. PREDNISOLONE [Concomitant]
     Dates: start: 20101215, end: 20110401
  13. PREDNISOLONE [Concomitant]
     Dosage: 7.5MG,1.25 MG, ONCE DAILY
     Dates: start: 20101207, end: 20101215
  14. PREDNISOLONE [Concomitant]
     Dates: start: 20111001
  15. SIMVASTATIN [Concomitant]
     Indication: HYPERLIPIDAEMIA
     Dates: start: 20070701
  16. PREDNISOLONE [Concomitant]
     Indication: RHEUMATOID ARTHRITIS
     Route: 048
     Dates: start: 20101001, end: 20101206

REACTIONS (1)
  - DERMATITIS ALLERGIC [None]
